FAERS Safety Report 25900551 (Version 1)
Quarter: 2025Q4

REPORT INFORMATION
  Report Type: Spontaneous
  Country: US (occurrence: None)
  Receive Date: 20251009
  Receipt Date: 20251009
  Transmission Date: 20260117
  Serious: Yes (Hospitalization)
  Sender: FDA-CTU
  Company Number: None

PATIENT
  Age: 64 Year
  Sex: Male
  Weight: 72.2 kg

DRUGS (1)
  1. CABAZITAXEL [Suspect]
     Active Substance: CABAZITAXEL

REACTIONS (12)
  - Chest pain [None]
  - Cardiac failure [None]
  - Ejection fraction decreased [None]
  - Atelectasis [None]
  - Aortic dilatation [None]
  - Metastases to bone [None]
  - Cystitis [None]
  - Bladder hypertrophy [None]
  - Hydronephrosis [None]
  - Biliary dilatation [None]
  - Gallbladder disorder [None]
  - Renal cyst [None]

NARRATIVE: CASE EVENT DATE: 20250331
